FAERS Safety Report 11050981 (Version 1)
Quarter: 2015Q2

REPORT INFORMATION
  Report Type: Spontaneous
  Country: HR (occurrence: HR)
  Receive Date: 20150421
  Receipt Date: 20150421
  Transmission Date: 20150821
  Serious: Yes (Hospitalization, Other)
  Sender: FDA-Public Use
  Company Number: HR-JNJFOC-20150413003

PATIENT
  Sex: Female

DRUGS (12)
  1. TRITACE [Concomitant]
     Active Substance: RAMIPRIL
     Indication: HYPERTENSION
     Route: 048
  2. FOLACIN [Concomitant]
     Active Substance: FOLIC ACID
     Indication: PRODUCT USED FOR UNKNOWN INDICATION
     Route: 048
  3. ZALDIAR [Suspect]
     Active Substance: ACETAMINOPHEN\TRAMADOL HYDROCHLORIDE
     Indication: PRODUCT USED FOR UNKNOWN INDICATION
     Route: 048
     Dates: end: 20131119
  4. NEBILET [Concomitant]
     Active Substance: NEBIVOLOL
     Indication: HYPERTENSION
     Route: 048
  5. PLIBEX [Concomitant]
     Indication: VITAMIN B COMPLEX DEFICIENCY
     Route: 048
  6. GENTAMICIN. [Concomitant]
     Active Substance: GENTAMICIN
     Indication: PRODUCT USED FOR UNKNOWN INDICATION
     Route: 048
     Dates: start: 20131112
  7. PRAXITEN [Concomitant]
     Active Substance: OXAZEPAM
     Indication: PRODUCT USED FOR UNKNOWN INDICATION
     Route: 048
     Dates: end: 20131119
  8. CLARITIN [Concomitant]
     Active Substance: LORATADINE
     Indication: HYPERSENSITIVITY
     Route: 048
  9. FEVARIN [Interacting]
     Active Substance: FLUVOXAMINE MALEATE
     Indication: AFFECTIVE DISORDER
     Route: 048
     Dates: end: 20131119
  10. PANTOPRAZOLE [Concomitant]
     Active Substance: PANTOPRAZOLE SODIUM
     Indication: CHRONIC GASTRITIS
     Route: 048
  11. HEFEROL [Concomitant]
     Active Substance: FERROUS FUMARATE
     Indication: ANAEMIA
     Route: 048
  12. ALDACTONE [Concomitant]
     Active Substance: SPIRONOLACTONE
     Indication: PRODUCT USED FOR UNKNOWN INDICATION
     Route: 048

REACTIONS (12)
  - Serotonin syndrome [Recovered/Resolved]
  - Nuchal rigidity [Recovered/Resolved]
  - Muscle rigidity [Recovered/Resolved]
  - C-reactive protein increased [Recovered/Resolved]
  - Gaze palsy [Recovered/Resolved]
  - Confusional state [Recovered/Resolved]
  - Hypertonia [Recovered/Resolved]
  - Food aversion [Recovered/Resolved]
  - Drug interaction [Recovered/Resolved]
  - Trismus [Recovered/Resolved]
  - Pyrexia [Recovered/Resolved]
  - Extensor plantar response [Recovered/Resolved]

NARRATIVE: CASE EVENT DATE: 20131112
